FAERS Safety Report 6700216-5 (Version None)
Quarter: 2010Q2

REPORT INFORMATION
  Report Type: 
  Country: None (occurrence: None)
  Receive Date: 20100428
  Receipt Date: 20100416
  Transmission Date: 20101027
  Serious: Yes (Other)
  Sender: FDA-Public Use
  Company Number: JP-PFIZER INC-2010051659

PATIENT
  Age: 66 Year
  Sex: Male
  Weight: 46 kg

DRUGS (4)
  1. CAMPTOSAR [Suspect]
     Indication: COLORECTAL CANCER
     Dosage: 156.9 MG/M2, (240 MG/BODY)
     Route: 041
     Dates: start: 20100201, end: 20100215
  2. CALCIUM LEVOFOLINATE [Concomitant]
     Indication: COLORECTAL CANCER
     Dosage: 166.7 MG/M2, (255 MG BODY)
     Route: 041
     Dates: start: 20100201, end: 20100215
  3. FLUOROURACIL [Concomitant]
     Indication: COLORECTAL CANCER
     Dosage: 333.3 MG/M2, (510 MG/BODY)
     Route: 040
     Dates: start: 20100201, end: 20100215
  4. FLUOROURACIL [Concomitant]
     Dosage: 2477.1 MG/M2, (3790 MG/BODY)
     Route: 041
     Dates: start: 20100201, end: 20100215

REACTIONS (2)
  - HAEMOGLOBIN DECREASED [None]
  - INJECTION SITE INFECTION [None]
